FAERS Safety Report 15861772 (Version 7)
Quarter: 2023Q1

REPORT INFORMATION
  Report Type: Report from Study
  Country: US (occurrence: US)
  Receive Date: 20190124
  Receipt Date: 20230117
  Transmission Date: 20230417
  Serious: No
  Sender: FDA-Public Use
  Company Number: US-PFIZER INC-2019025406

PATIENT
  Sex: Female

DRUGS (7)
  1. LYRICA [Suspect]
     Active Substance: PREGABALIN
     Indication: Herpes zoster
     Dosage: 150 MG, 2X/DAY REGIMEN DOSE UNIT: MILLIGRAM
     Route: 048
  2. LYRICA [Suspect]
     Active Substance: PREGABALIN
     Indication: Varicella
  3. LYRICA [Suspect]
     Active Substance: PREGABALIN
     Indication: Ear disorder
  4. LYRICA [Suspect]
     Active Substance: PREGABALIN
     Indication: Trigeminal neuralgia
  5. LYRICA [Suspect]
     Active Substance: PREGABALIN
     Indication: Cystitis
  6. PREMARIN [Suspect]
     Active Substance: ESTROGENS, CONJUGATED
     Indication: Cystitis
     Dosage: UNK
     Route: 065
  7. VALACYCLOVIR [Concomitant]
     Active Substance: VALACYCLOVIR HYDROCHLORIDE
     Indication: Product used for unknown indication
     Dosage: 1 G (1G MAINTENANCE DOSE)
     Route: 065

REACTIONS (4)
  - Somnambulism [Unknown]
  - Somnolence [Unknown]
  - Illness [Unknown]
  - Fatigue [Recovered/Resolved]
